FAERS Safety Report 4279822-6 (Version None)
Quarter: 2004Q1

REPORT INFORMATION
  Report Type: 
  Country: None (occurrence: None)
  Receive Date: 20040122
  Receipt Date: 20040109
  Transmission Date: 20041129
  Serious: Yes (Other)
  Sender: FDA-Public Use
  Company Number: 200410046JP

PATIENT

DRUGS (2)
  1. GLIBENCLAMIDE (DAONIL) TABLETS [Suspect]
     Dosage: PO
     Route: 048
  2. NICORANDIL (SIGMART) [Concomitant]

REACTIONS (4)
  - ANAPHYLACTIC SHOCK [None]
  - CYANOSIS [None]
  - MEDICATION ERROR [None]
  - PULMONARY OEDEMA [None]
